FAERS Safety Report 4730950-8 (Version None)
Quarter: 2005Q3

REPORT INFORMATION
  Report Type: 
  Country: None (occurrence: None)
  Receive Date: 20050719
  Receipt Date: 20040628
  Transmission Date: 20060218
  Serious: Yes (Hospitalization)
  Sender: FDA-Public Use
  Company Number: 200671

PATIENT
  Age: 30 Year
  Sex: Female
  Weight: 45.3597 kg

DRUGS (2)
  1. AVONEX [Suspect]
     Indication: MULTIPLE SCLEROSIS
     Dosage: 30 UG; QW; IM
     Route: 030
     Dates: start: 20010101, end: 20030801
  2. AVONEX [Suspect]
     Indication: MULTIPLE SCLEROSIS
     Dosage: 30 UG; QW; IM
     Route: 030
     Dates: start: 20030801

REACTIONS (8)
  - DEPRESSION [None]
  - FATIGUE [None]
  - HYPERCHLORHYDRIA [None]
  - HYPOGLYCAEMIA [None]
  - MULTIPLE ALLERGIES [None]
  - MULTIPLE SCLEROSIS RELAPSE [None]
  - MUSCLE FATIGUE [None]
  - URINARY HESITATION [None]
